FAERS Safety Report 20793918 (Version 1)
Quarter: 2022Q2

REPORT INFORMATION
  Report Type: Spontaneous
  Country: GB (occurrence: GB)
  Receive Date: 20220506
  Receipt Date: 20220506
  Transmission Date: 20220721
  Serious: Yes (Disabling)
  Sender: FDA-Public Use
  Company Number: GB-TAKEDA-2022TEU003056

PATIENT
  Age: 74 Year
  Sex: Female
  Weight: 110 kg

DRUGS (29)
  1. ALOGLIPTIN [Suspect]
     Active Substance: ALOGLIPTIN
     Indication: Diabetes mellitus
     Dosage: 6.25 MILLIGRAM
     Route: 048
     Dates: start: 20210729, end: 20210803
  2. ATORVASTATIN [Concomitant]
     Active Substance: ATORVASTATIN
     Dosage: UNK UNK, QD
     Dates: start: 20211021
  3. BECLOMETHASONE DIPROPIONATE [Concomitant]
     Active Substance: BECLOMETHASONE DIPROPIONATE
     Dosage: UNK UNK, BID
     Dates: start: 20211021
  4. BUPRENORPHINE [Concomitant]
     Active Substance: BUPRENORPHINE
     Dosage: UNK
     Dates: start: 20211021
  5. CALCIUM CARBONATE [Concomitant]
     Active Substance: CALCIUM CARBONATE
     Dosage: UNK UNK, BID
     Dates: start: 20211021
  6. CANDESARTAN [Concomitant]
     Active Substance: CANDESARTAN
     Dosage: UNK UNK, QD
     Dates: start: 20211021
  7. CLOPIDOGREL [Concomitant]
     Active Substance: CLOPIDOGREL BISULFATE
     Dosage: UNK UNK, QD
     Dates: start: 20211021
  8. CHOLECALCIFEROL [Concomitant]
     Active Substance: CHOLECALCIFEROL
     Dosage: UNK UNK, QD
     Dates: start: 20211021
  9. DAPAGLIFLOZIN [Concomitant]
     Active Substance: DAPAGLIFLOZIN
     Dosage: UNK UNK, QD
     Dates: start: 20211215
  10. FLUCONAZOLE [Concomitant]
     Active Substance: FLUCONAZOLE
     Dosage: UNK UNK, QD
     Dates: start: 20220217, end: 20220224
  11. FLUOXETINE [Concomitant]
     Active Substance: FLUOXETINE HYDROCHLORIDE
     Dosage: UNK UNK, QD
     Dates: start: 20211021
  12. POTASSIUM BICARBONATE\SODIUM ALGINATE [Concomitant]
     Active Substance: POTASSIUM BICARBONATE\SODIUM ALGINATE
     Dosage: UNK
     Dates: start: 20211021
  13. INSULIN HUMAN [Concomitant]
     Active Substance: INSULIN HUMAN
     Dosage: UNK
     Dates: start: 20211021, end: 20220329
  14. Hydromol [Concomitant]
     Dosage: UNK
     Dates: start: 20211021
  15. HYDROXOCOBALAMIN [Concomitant]
     Active Substance: HYDROXOCOBALAMIN
     Dosage: UNK
     Dates: start: 20211021
  16. LANTUS [Concomitant]
     Active Substance: INSULIN GLARGINE
     Dosage: UNK
     Dates: start: 20220329
  17. POLYETHYLENE GLYCOL 3350\POTASSIUM CHLORIDE\SODIUM BICARBONATE\SODIUM [Concomitant]
     Active Substance: POLYETHYLENE GLYCOL 3350\POTASSIUM CHLORIDE\SODIUM BICARBONATE\SODIUM CHLORIDE
     Dosage: UNK UNK, QD
     Dates: start: 20211021
  18. MAGNESIUM ASPARTATE [Concomitant]
     Active Substance: MAGNESIUM ASPARTATE
     Dosage: UNK UNK, BID
     Dates: start: 20211021
  19. MAXITROL [Concomitant]
     Active Substance: DEXAMETHASONE\NEOMYCIN SULFATE\POLYMYXIN B SULFATE
     Dosage: UNK UNK, TID
     Dates: start: 20220413, end: 20220418
  20. MEBEVERINE HYDROCHLORIDE [Concomitant]
     Active Substance: MEBEVERINE HYDROCHLORIDE
     Dosage: UNK UNK, TID
     Dates: start: 20211021
  21. METFORMIN [Concomitant]
     Active Substance: METFORMIN HYDROCHLORIDE
     Dosage: UNK UNK, QD
     Dates: start: 20220217
  22. METOCLOPRAMIDE [Concomitant]
     Active Substance: METOCLOPRAMIDE
     Dosage: UNK UNK, QD
     Dates: start: 20211021
  23. OMEPRAZOLE [Concomitant]
     Active Substance: OMEPRAZOLE
     Dosage: UNK UNK, BID
     Dates: start: 20211021
  24. MORPHINE SULFATE [Concomitant]
     Active Substance: MORPHINE SULFATE
     Dosage: UNK
     Dates: start: 20211021
  25. ACETAMINOPHEN [Concomitant]
     Active Substance: ACETAMINOPHEN
     Dosage: UNK
     Dates: start: 20211021
  26. QVAR [Concomitant]
     Active Substance: BECLOMETHASONE DIPROPIONATE
     Dosage: UNK UNK, BID
     Route: 055
     Dates: start: 20211222
  27. TRAMADOL [Concomitant]
     Active Substance: TRAMADOL
     Dosage: UNK
     Dates: start: 20211021
  28. TRULICITY [Concomitant]
     Active Substance: DULAGLUTIDE
     Dosage: UNK UNK, 1/WEEK
     Dates: start: 20220124, end: 20220217
  29. VENTOLIN [Concomitant]
     Active Substance: ALBUTEROL SULFATE
     Dosage: UNK
     Route: 055
     Dates: start: 20211021

REACTIONS (2)
  - Rash [Recovered/Resolved]
  - Headache [Unknown]

NARRATIVE: CASE EVENT DATE: 20210730
